FAERS Safety Report 17043866 (Version 1)
Quarter: 2019Q4

REPORT INFORMATION
  Report Type: Spontaneous
  Country: AR (occurrence: AR)
  Receive Date: 20191118
  Receipt Date: 20191118
  Transmission Date: 20200122
  Serious: Yes (Other)
  Sender: FDA-Public Use
  Company Number: AR-AMGEN-ARGSP2019099796

PATIENT
  Age: 64 Year
  Sex: Female

DRUGS (1)
  1. ENBREL [Suspect]
     Active Substance: ETANERCEPT
     Indication: RHEUMATOID ARTHRITIS
     Dosage: 50 MILLIGRAM, QWK
     Route: 065
     Dates: start: 20180413, end: 201908

REACTIONS (6)
  - Drug dose omission by device [Unknown]
  - Visual impairment [Recovering/Resolving]
  - Laboratory test abnormal [Recovering/Resolving]
  - Device issue [Unknown]
  - Malaise [Recovering/Resolving]
  - Lacrimation decreased [Recovering/Resolving]

NARRATIVE: CASE EVENT DATE: 201904
